FAERS Safety Report 5142513-3 (Version None)
Quarter: 2006Q4

REPORT INFORMATION
  Report Type: 
  Country: None (occurrence: None)
  Receive Date: 20061027
  Receipt Date: 20061018
  Transmission Date: 20070319
  Serious: Yes (Hospitalization)
  Sender: FDA-Public Use
  Company Number: SPV1-2006-01241

PATIENT
  Age: 13 Year
  Sex: Male
  Weight: 49.9 kg

DRUGS (3)
  1. ADDERALL XR (DEXTROAMPHETAMINE SULFATE, DEXTROAMHETAMINE SACCHARATE, A [Suspect]
     Dosage: 25 MG, ORAL
     Route: 048
     Dates: start: 20030101
  2. BENADRYL /0000042/ (DIPHENHYDRAMINE HYDROCHLORIDE) [Concomitant]
  3. MELATONIN (MELATONIN) [Concomitant]

REACTIONS (2)
  - ESCHERICHIA INFECTION [None]
  - KIDNEY INFECTION [None]
